FAERS Safety Report 4428135-8 (Version None)
Quarter: 2004Q3

REPORT INFORMATION
  Report Type: 
  Country: None (occurrence: None)
  Receive Date: 20040726
  Receipt Date: 20030922
  Transmission Date: 20050211
  Serious: No
  Sender: FDA-Public Use
  Company Number: USA031048743

PATIENT
  Age: 82 Year
  Sex: Female
  Weight: 36 kg

DRUGS (1)
  1. FORTEO [Suspect]
     Indication: OSTEOPOROSIS
     Dosage: 1 UG DAY
     Dates: start: 20030401

REACTIONS (11)
  - ASTHENIA [None]
  - CONSTIPATION [None]
  - DIFFICULTY IN WALKING [None]
  - INJECTION SITE HAEMORRHAGE [None]
  - INJECTION SITE PAIN [None]
  - JOINT SWELLING [None]
  - MUSCLE CRAMP [None]
  - MUSCULAR WEAKNESS [None]
  - NAUSEA [None]
  - PAIN IN EXTREMITY [None]
  - WALKING AID USER [None]
